FAERS Safety Report 12435915 (Version 3)
Quarter: 2016Q3

REPORT INFORMATION
  Report Type: Spontaneous
  Country: HK (occurrence: HK)
  Receive Date: 20160604
  Receipt Date: 20160715
  Transmission Date: 20161109
  Serious: Yes (Death, Other)
  Sender: FDA-Public Use
  Company Number: HK-ASTRAZENECA-2016SE57270

PATIENT
  Age: 63 Year
  Sex: Female
  Weight: 56.8 kg

DRUGS (3)
  1. TAGRISSO [Suspect]
     Active Substance: OSIMERTINIB
     Indication: LUNG NEOPLASM MALIGNANT
     Route: 048
     Dates: start: 20160402, end: 20160424
  2. HERBAL MEDICINE [Concomitant]
  3. IRESSA [Suspect]
     Active Substance: GEFITINIB
     Indication: SKIN REACTION
     Dosage: DOSE UNKNOWN
     Route: 048

REACTIONS (4)
  - Klebsiella test positive [Unknown]
  - Acute hepatic failure [Fatal]
  - Sepsis [Fatal]
  - Rash [Unknown]
